FAERS Safety Report 17755478 (Version 1)
Quarter: 2020Q2

REPORT INFORMATION
  Report Type: Spontaneous
  Country: JP (occurrence: JP)
  Receive Date: 20200507
  Receipt Date: 20200507
  Transmission Date: 20200714
  Serious: Yes (Other)
  Sender: FDA-Public Use
  Company Number: JP-MYLANLABS-2020M1043432

PATIENT
  Age: 87 Year
  Sex: Female

DRUGS (3)
  1. LYRICA [Suspect]
     Active Substance: PREGABALIN
     Indication: PAIN
     Dosage: 25 MILLIGRAM, PRN
     Route: 048
     Dates: start: 20200418
  2. LOXONIN [Concomitant]
     Active Substance: LOXOPROFEN SODIUM
     Indication: PAIN
     Dosage: UNK, BID
     Route: 048
  3. PARACETAMOL/TRAMADOL [Suspect]
     Active Substance: ACETAMINOPHEN\TRAMADOL
     Indication: PAIN
     Dosage: UNK UNK, PRN
     Route: 048
     Dates: start: 20200418

REACTIONS (2)
  - Depressed level of consciousness [Recovered/Resolved]
  - Snoring [Unknown]

NARRATIVE: CASE EVENT DATE: 20200418
